FAERS Safety Report 7702391-2 (Version None)
Quarter: 2011Q3

REPORT INFORMATION
  Report Type: 
  Country: None (occurrence: None)
  Receive Date: 20110822
  Receipt Date: 20110809
  Transmission Date: 20111222
  Serious: Yes (Hospitalization, Other)
  Sender: FDA-Public Use
  Company Number: US-CELGENEUS-163-21880-07120066

PATIENT
  Age: 49 Year
  Sex: Male
  Weight: 128.5 kg

DRUGS (2)
  1. TEMSIROLIMUS [Suspect]
     Indication: MULTIPLE MYELOMA
     Dosage: 15MG OVER 30 MIN
     Route: 041
     Dates: start: 20071015
  2. REVLIMID [Suspect]
     Indication: MULTIPLE MYELOMA
     Dosage: 20 MILLIGRAM
     Route: 048
     Dates: start: 20071015

REACTIONS (3)
  - PNEUMONIA [None]
  - DIARRHOEA [None]
  - HYPOPHOSPHATAEMIA [None]
